FAERS Safety Report 8806694 (Version 1)
Quarter: 2012Q4

REPORT INFORMATION
  Report Type: Spontaneous
  Country: US (occurrence: None)
  Receive Date: 20120920
  Receipt Date: 20120920
  Transmission Date: 20130627
  Serious: Yes (Hospitalization)
  Sender: FDA-Public Use
  Company Number: None

PATIENT
  Age: 55 Year
  Sex: Female
  Weight: 80.74 kg

DRUGS (2)
  1. DARVOCET [Suspect]
     Indication: ADVERSE REACTION
     Dates: start: 20090920
  2. DARVOCET [Suspect]
     Indication: ADVERSE REACTION
     Dates: start: 20090924

REACTIONS (5)
  - Vomiting [None]
  - Diarrhoea [None]
  - Hyperhidrosis [None]
  - Hallucination [None]
  - Cardiac failure congestive [None]
